FAERS Safety Report 19073266 (Version 2)
Quarter: 2021Q2

REPORT INFORMATION
  Report Type: Spontaneous
  Country: US (occurrence: US)
  Receive Date: 20210330
  Receipt Date: 20210630
  Transmission Date: 20210717
  Serious: Yes (Other)
  Sender: FDA-Public Use
  Company Number: US-PFIZER INC-2021319668

PATIENT
  Age: 66 Year
  Sex: Female

DRUGS (2)
  1. XELJANZ XR [Suspect]
     Active Substance: TOFACITINIB CITRATE
     Dosage: 11 MG
     Dates: start: 20210101
  2. XELJANZ XR [Suspect]
     Active Substance: TOFACITINIB CITRATE
     Dosage: 11 MG
     Dates: start: 20201215

REACTIONS (7)
  - Sjogren^s syndrome [Unknown]
  - Pain [Not Recovered/Not Resolved]
  - Contusion [Unknown]
  - Product dose omission issue [Unknown]
  - Fluid retention [Unknown]
  - Glomerular filtration rate decreased [Unknown]
  - Memory impairment [Unknown]
